FAERS Safety Report 4964327-7 (Version None)
Quarter: 2006Q1

REPORT INFORMATION
  Report Type: 
  Country: None (occurrence: None)
  Receive Date: 20060331
  Receipt Date: 20060314
  Transmission Date: 20060701
  Serious: Yes (Hospitalization)
  Sender: FDA-Public Use
  Company Number: GBT040901667

PATIENT
  Age: 56 Year
  Sex: Female
  Weight: 67.1 kg

DRUGS (5)
  1. GEMCITABINE HYDROCHLORIDE (GEMCITABINE HYDROCHLORIDE) VIAL [Suspect]
     Indication: BREAST CANCER
     Dosage: 2204 MG, INTRAVENOUS
     Route: 042
     Dates: start: 20040602
  2. PACLITAXEL [Suspect]
     Indication: BREAST CANCER
     Dosage: 300 MG, INTRAVENOUS
     Route: 042
     Dates: start: 20040602
  3. EPIRUBICIN [Suspect]
     Indication: BREAST CANCER
     Dosage: 160 MG,
     Dates: start: 20040312, end: 20040514
  4. CYCLOPHOSPHAMIDE [Concomitant]
     Indication: BREAST CANCER
     Dosage: 1000 MG,
     Dates: start: 20040312, end: 20040514
  5. DEXAMETHASONE TAB [Concomitant]

REACTIONS (9)
  - BREAST CELLULITIS [None]
  - BREAST TENDERNESS [None]
  - ERYTHEMA [None]
  - HAEMOGLOBIN DECREASED [None]
  - INFECTION [None]
  - NEUTROPHIL COUNT DECREASED [None]
  - PYREXIA [None]
  - URINARY TRACT INFECTION [None]
  - WHITE BLOOD CELL COUNT DECREASED [None]
